FAERS Safety Report 26093061 (Version 1)
Quarter: 2025Q4

REPORT INFORMATION
  Report Type: Spontaneous
  Country: US (occurrence: US)
  Receive Date: 20251126
  Receipt Date: 20251126
  Transmission Date: 20260118
  Serious: No
  Sender: SANOFI AVENTIS
  Company Number: US-SA-2025SA351965

PATIENT
  Age: 31 Year
  Sex: Male

DRUGS (2)
  1. ALTUVIIIO [Suspect]
     Active Substance: EFANESOCTOCOG ALFA
     Indication: Factor VIII deficiency
     Dosage: 2000 U (1800-2200)
     Route: 042
  2. ALTUVIIIO [Suspect]
     Active Substance: EFANESOCTOCOG ALFA
     Dosage: 4000 U (3600-4400)
     Route: 042

REACTIONS (2)
  - Joint injury [Unknown]
  - Traumatic haemorrhage [Unknown]

NARRATIVE: CASE EVENT DATE: 20250101
